FAERS Safety Report 9868021 (Version 2)
Quarter: 2014Q1

REPORT INFORMATION
  Report Type: Report from Study
  Country: US (occurrence: US)
  Receive Date: 20140204
  Receipt Date: 20140314
  Transmission Date: 20141002
  Serious: Yes (Hospitalization)
  Sender: FDA-Public Use
  Company Number: US-ACTELION-A-NJ2014-94332

PATIENT
  Age: 8 Year
  Sex: Female

DRUGS (7)
  1. TRACLEER [Suspect]
     Indication: PULMONARY ARTERIAL HYPERTENSION
     Dosage: UNK
     Route: 048
  2. SILDENAFIL [Concomitant]
  3. ALBUTEROL [Concomitant]
  4. CETIRIZINE [Concomitant]
  5. FLOVENT [Concomitant]
  6. PREDNISONE [Concomitant]
  7. CIPRO [Concomitant]

REACTIONS (1)
  - Influenza [Recovering/Resolving]
